FAERS Safety Report 25641322 (Version 3)
Quarter: 2025Q3

REPORT INFORMATION
  Report Type: Report from Study
  Country: CA (occurrence: CA)
  Receive Date: 20250804
  Receipt Date: 20250911
  Transmission Date: 20251021
  Serious: Yes (Other)
  Sender: TAKEDA
  Company Number: CA-TAKEDA-2024TUS090829

PATIENT
  Age: 76 Year
  Sex: Male

DRUGS (5)
  1. VEDOLIZUMAB [Suspect]
     Active Substance: VEDOLIZUMAB
     Indication: Crohn^s disease
  2. VEDOLIZUMAB [Suspect]
     Active Substance: VEDOLIZUMAB
     Dosage: 300 MILLIGRAM, Q4WEEKS
     Dates: start: 20250805
  3. ENTOCORT [Concomitant]
     Active Substance: BUDESONIDE
  4. Cortiment [Concomitant]
  5. BUDESONIDE [Concomitant]
     Active Substance: BUDESONIDE

REACTIONS (5)
  - Crohn^s disease [Unknown]
  - Diarrhoea [Unknown]
  - Off label use [Unknown]
  - Faeces soft [Unknown]
  - Arthralgia [Unknown]

NARRATIVE: CASE EVENT DATE: 20250805
